FAERS Safety Report 14227534 (Version 2)
Quarter: 2017Q4

REPORT INFORMATION
  Report Type: Report from Study
  Country: BR (occurrence: BR)
  Receive Date: 20171127
  Receipt Date: 20171212
  Transmission Date: 20180321
  Serious: Yes (Other)
  Sender: FDA-Public Use
  Company Number: PHHY2017BR162236

PATIENT
  Sex: Female

DRUGS (1)
  1. EXELON PATCH [Suspect]
     Active Substance: RIVASTIGMINE
     Indication: MEMORY IMPAIRMENT
     Dosage: 4.6 MG, (PATCH 5 (CM2)), QD
     Route: 062
     Dates: start: 201512

REACTIONS (10)
  - Cerebrovascular accident [Unknown]
  - Drug ineffective [Unknown]
  - Intracranial pressure increased [Unknown]
  - Dehydration [Unknown]
  - Restlessness [Unknown]
  - Disorientation [Unknown]
  - Dizziness [Unknown]
  - Product adhesion issue [Unknown]
  - Device issue [Unknown]
  - Malaise [Unknown]
